FAERS Safety Report 20530817 (Version 1)
Quarter: 2022Q1

REPORT INFORMATION
  Report Type: Spontaneous
  Country: US (occurrence: US)
  Receive Date: 20220301
  Receipt Date: 20220301
  Transmission Date: 20220423
  Serious: Yes (Other)
  Sender: FDA-Public Use
  Company Number: US-GW PHARMA-202202USGW00871

PATIENT
  Age: 25 Year
  Sex: Male
  Weight: 77.1 kg

DRUGS (2)
  1. EPIDIOLEX [Suspect]
     Active Substance: CANNABIDIOL
     Indication: Epilepsy
     Dosage: 28.53 MG/KG/DAY, 1100 MILLIGRAM, BID, FIRST SHIPPED ON 07 AUG 2020
     Route: 048
     Dates: start: 202008
  2. ZONISAMIDE [Concomitant]
     Active Substance: ZONISAMIDE
     Indication: Product used for unknown indication
     Dosage: UNK
     Route: 065
     Dates: start: 20200806

REACTIONS (3)
  - Seizure [Unknown]
  - Accidental overdose [Unknown]
  - Prescribed overdose [Unknown]

NARRATIVE: CASE EVENT DATE: 20220217
